FAERS Safety Report 15769894 (Version 1)
Quarter: 2018Q4

REPORT INFORMATION
  Report Type: Spontaneous
  Country: US (occurrence: US)
  Receive Date: 20181227
  Receipt Date: 20181227
  Transmission Date: 20190205
  Serious: Yes (Disabling)
  Sender: FDA-Public Use
  Company Number: None

PATIENT
  Age: 56 Year
  Sex: Male
  Weight: 101.25 kg

DRUGS (1)
  1. CYMBALTA [Suspect]
     Active Substance: DULOXETINE HYDROCHLORIDE
     Indication: NEURALGIA
     Dosage: ?          QUANTITY:30 CAPSULE(S);?
     Route: 048

REACTIONS (12)
  - Paraesthesia [None]
  - Amnesia [None]
  - Disorientation [None]
  - Headache [None]
  - Irritability [None]
  - Fatigue [None]
  - Dizziness [None]
  - Impaired work ability [None]
  - Blood pressure increased [None]
  - Vertigo [None]
  - Nausea [None]
  - Weight increased [None]

NARRATIVE: CASE EVENT DATE: 20180926
